FAERS Safety Report 25512374 (Version 1)
Quarter: 2025Q3

REPORT INFORMATION
  Report Type: Spontaneous
  Country: US (occurrence: US)
  Receive Date: 20250703
  Receipt Date: 20250703
  Transmission Date: 20251021
  Serious: No
  Sender: SANDOZ
  Company Number: US-SANDOZ-SDZ2025US045583

PATIENT
  Sex: Male

DRUGS (1)
  1. LATANOPROST [Suspect]
     Active Substance: LATANOPROST
     Indication: Ocular discomfort
     Route: 047
     Dates: start: 2025

REACTIONS (5)
  - Ocular discomfort [Unknown]
  - Lacrimation increased [Unknown]
  - Photosensitivity reaction [Unknown]
  - Poor quality sleep [Unknown]
  - Eye pain [Unknown]

NARRATIVE: CASE EVENT DATE: 20250625
